FAERS Safety Report 8266929-1 (Version None)
Quarter: 2012Q2

REPORT INFORMATION
  Report Type: 
  Country: None (occurrence: None)
  Receive Date: 20120404
  Receipt Date: 20120404
  Transmission Date: 20120825
  Serious: Yes (Hospitalization)
  Sender: FDA-Public Use
  Company Number: None

PATIENT
  Age: 35 Year
  Sex: Female
  Weight: 65.9 kg

DRUGS (11)
  1. CARBAMAZEPINE [Suspect]
     Indication: CONVULSION
     Dosage: 200MG QAM PO CHRONIC
     Route: 048
  2. FLAVOXATE [Concomitant]
  3. INDOMETHACIN [Concomitant]
  4. VENLAFAXINE [Concomitant]
  5. LOMOTIL [Concomitant]
  6. PRAZOSIN HCL [Concomitant]
  7. PROMETHAZINE [Concomitant]
  8. TRUVADA [Concomitant]
  9. DIDANOSINE [Concomitant]
  10. CARBAMAZEPINE [Suspect]
     Indication: CONVULSION
     Dosage: 400MG QHS PO CHRONIC
     Route: 048
  11. PRAVACHOL [Concomitant]

REACTIONS (9)
  - DYSARTHRIA [None]
  - FATIGUE [None]
  - DECREASED APPETITE [None]
  - LIVER FUNCTION TEST ABNORMAL [None]
  - CONFUSIONAL STATE [None]
  - TOXICITY TO VARIOUS AGENTS [None]
  - HEADACHE [None]
  - PANCYTOPENIA [None]
  - RENAL FAILURE [None]
